FAERS Safety Report 7644335-8 (Version None)
Quarter: 2011Q3

REPORT INFORMATION
  Report Type: 
  Country: None (occurrence: None)
  Receive Date: 20110729
  Receipt Date: 20110727
  Transmission Date: 20111222
  Serious: Yes (Death, Hospitalization, Other)
  Sender: FDA-Public Use
  Company Number: US-ELI_LILLY_AND_COMPANY-US201002002011

PATIENT
  Sex: Female
  Weight: 107.48 kg

DRUGS (12)
  1. BYETTA [Suspect]
     Dosage: 10 UG, BID
  2. GLYBURIDE [Concomitant]
     Dosage: 5 MG, QD
  3. ISOSORBIDE DINITRATE [Concomitant]
     Dosage: 60 MG, QD
  4. ASPIRIN [Concomitant]
     Dosage: 81 MG, QD
  5. LEVOTHYROXINE SODIUM [Concomitant]
     Dosage: 100 DF, QD
  6. PROTONIX [Concomitant]
     Dosage: 40 DF, BID
  7. LISINOPRIL [Concomitant]
     Dosage: 2.5 DF, QD
  8. POTASSIUM CHLORIDE [Concomitant]
     Dosage: 10 MEQ, PRN
  9. BYETTA [Suspect]
     Dosage: 5 UG, BID
     Dates: start: 20050101
  10. ATENOLOL [Concomitant]
     Dosage: 50 MG, QD
  11. LASIX [Concomitant]
     Dosage: 20 MG, PRN
  12. ACTOS [Concomitant]
     Dosage: 45 DF, UNK

REACTIONS (2)
  - PANCREATITIS [None]
  - PANCREATIC CARCINOMA [None]
